FAERS Safety Report 25527812 (Version 1)
Quarter: 2025Q3

REPORT INFORMATION
  Report Type: Report from Study
  Country: US (occurrence: US)
  Receive Date: 20250708
  Receipt Date: 20250708
  Transmission Date: 20251020
  Serious: Yes (Other)
  Sender: ACADIA PHARMACEUTICALS
  Company Number: US-ACADIA PHARMACEUTICALS INC.-ACA-2025-PIM-007880

PATIENT
  Sex: Male

DRUGS (17)
  1. NUPLAZID [Suspect]
     Active Substance: PIMAVANSERIN TARTRATE
     Indication: Hallucination
     Dosage: 34 MILLIGRAM, QD
     Route: 048
     Dates: start: 20250703
  2. NUPLAZID [Suspect]
     Active Substance: PIMAVANSERIN TARTRATE
     Indication: Dementia with Lewy bodies
  3. TYLENOL [Concomitant]
     Active Substance: ACETAMINOPHEN
  4. MEMANTINE [Concomitant]
     Active Substance: MEMANTINE
  5. DOXYCYCLINE [Concomitant]
     Active Substance: DOXYCYCLINE
  6. DONEPEZIL [Concomitant]
     Active Substance: DONEPEZIL
  7. TAMSULOSIN [Concomitant]
     Active Substance: TAMSULOSIN
  8. CIPROFLOXACIN [Concomitant]
     Active Substance: CIPROFLOXACIN
  9. GABAPENTIN [Concomitant]
     Active Substance: GABAPENTIN
  10. TRAMADOL [Concomitant]
     Active Substance: TRAMADOL
  11. METFORMIN [Concomitant]
     Active Substance: METFORMIN HYDROCHLORIDE
  12. PROAIR HFA [Concomitant]
     Active Substance: ALBUTEROL SULFATE
  13. PRAVASTATIN [Concomitant]
     Active Substance: PRAVASTATIN
  14. LISINOPRIL [Concomitant]
     Active Substance: LISINOPRIL
  15. AUGMENTIN [Concomitant]
     Active Substance: AMOXICILLIN\CLAVULANATE POTASSIUM
  16. AZITHROMYCIN [Concomitant]
     Active Substance: AZITHROMYCIN
  17. PAXLOVID [Concomitant]
     Active Substance: NIRMATRELVIR\RITONAVIR

REACTIONS (2)
  - Dementia with Lewy bodies [Not Recovered/Not Resolved]
  - Off label use [Not Recovered/Not Resolved]
